FAERS Safety Report 13358387 (Version 1)
Quarter: 2017Q1

REPORT INFORMATION
  Report Type: Spontaneous
  Country: US (occurrence: US)
  Receive Date: 20170321
  Receipt Date: 20170321
  Transmission Date: 20170429
  Serious: No
  Sender: FDA-Public Use
  Company Number: None

PATIENT
  Age: 66 Year
  Sex: Female
  Weight: 64.35 kg

DRUGS (9)
  1. VITAMIN C [Concomitant]
     Active Substance: ASCORBIC ACID
  2. MULTI VITAMIN [Concomitant]
     Active Substance: VITAMINS
  3. DULERA [Suspect]
     Active Substance: FORMOTEROL FUMARATE DIHYDRATE\MOMETASONE FUROATE
     Indication: ASTHMA
     Dosage: 2 PUFF(S) TWICE A DAY RESPIRATORY (INHALATION)
     Route: 055
     Dates: start: 20170105, end: 20170302
  4. LUTEIN [Concomitant]
     Active Substance: LUTEIN
  5. GLUCOSAMINE + CONDRITAN [Concomitant]
  6. TRAZODONE [Concomitant]
     Active Substance: TRAZODONE HYDROCHLORIDE
  7. VENLAFAXINE [Concomitant]
     Active Substance: VENLAFAXINE HYDROCHLORIDE
  8. ESTRACE [Concomitant]
     Active Substance: ESTRADIOL
  9. MULTI MINERAL [Concomitant]

REACTIONS (2)
  - Purpura [None]
  - Oropharyngeal pain [None]

NARRATIVE: CASE EVENT DATE: 20170215
